FAERS Safety Report 6313623-X (Version None)
Quarter: 2009Q3

REPORT INFORMATION
  Report Type: 
  Country: None (occurrence: None)
  Receive Date: 20090814
  Receipt Date: 20090814
  Transmission Date: 20100115
  Serious: Yes (Other)
  Sender: FDA-Public Use
  Company Number: None

PATIENT
  Age: 87 Year
  Sex: Female

DRUGS (3)
  1. REMERON [Suspect]
     Indication: DEPRESSION
     Dosage: 7.5MG DAILY PO
     Route: 048
     Dates: start: 20090625, end: 20090730
  2. REMERON [Suspect]
     Indication: DEPRESSION
     Dosage: 7.5MG DAILY PO
     Route: 048
     Dates: start: 20090804
  3. COUMADIN [Suspect]
     Indication: ATRIAL FIBRILLATION
     Dosage: TARGET INR 2-3; ABT 20-22. 5MG/W DAILY PO YRS
     Route: 048

REACTIONS (2)
  - INTERNATIONAL NORMALISED RATIO DECREASED [None]
  - INTERNATIONAL NORMALISED RATIO INCREASED [None]
